FAERS Safety Report 12378834 (Version 2)
Quarter: 2016Q2

REPORT INFORMATION
  Report Type: Report from Study
  Country: US (occurrence: US)
  Receive Date: 20160517
  Receipt Date: 20160602
  Transmission Date: 20160815
  Serious: Yes (Hospitalization)
  Sender: FDA-Public Use
  Company Number: US-ACTELION-A-NJ2014-099687

PATIENT
  Age: 61 Year
  Sex: Female

DRUGS (17)
  1. POTASSIUM CHLORIDE. [Concomitant]
     Active Substance: POTASSIUM CHLORIDE
     Dosage: UNK
  2. ASA [Concomitant]
     Active Substance: ASPIRIN
     Dosage: UNK
  3. TYLENOL [Concomitant]
     Active Substance: ACETAMINOPHEN
  4. DILTIAZEM [Concomitant]
     Active Substance: DILTIAZEM
  5. CITALOPRAM [Concomitant]
     Active Substance: CITALOPRAM HYDROBROMIDE
  6. MORPHINE [Concomitant]
     Active Substance: MORPHINE
  7. ZOFRAN [Concomitant]
     Active Substance: ONDANSETRON HYDROCHLORIDE
     Dosage: UNK
  8. FUROSEMIDE. [Concomitant]
     Active Substance: FUROSEMIDE
     Dosage: UNK
  9. TRACLEER [Suspect]
     Active Substance: BOSENTAN
     Indication: PULMONARY HYPERTENSION
     Dosage: 125 MG, BID
     Route: 048
     Dates: start: 2010
  10. TRACLEER [Suspect]
     Active Substance: BOSENTAN
     Dosage: UNK
     Route: 048
  11. REMODULIN [Concomitant]
     Active Substance: TREPROSTINIL
  12. RIOCIGUAT [Concomitant]
     Active Substance: RIOCIGUAT
  13. SPIRONOLACTONE. [Concomitant]
     Active Substance: SPIRONOLACTONE
     Dosage: UNK
  14. ZOLPIDEM [Concomitant]
     Active Substance: ZOLPIDEM\ZOLPIDEM TARTRATE
     Dosage: UNK
  15. METOLAZONE. [Concomitant]
     Active Substance: METOLAZONE
  16. CELLCEPT [Concomitant]
     Active Substance: MYCOPHENOLATE MOFETIL\MYCOPHENOLATE MOFETIL HYDROCHLORIDE
     Dosage: UNK
  17. PANTOPRAZOLE [Concomitant]
     Active Substance: PANTOPRAZOLE SODIUM

REACTIONS (14)
  - Gallbladder disorder [Unknown]
  - Gallbladder pain [Unknown]
  - Dyspnoea [Unknown]
  - Condition aggravated [Unknown]
  - Chest pain [Unknown]
  - Clostridium difficile colitis [Recovered/Resolved]
  - Gastrointestinal disorder [Unknown]
  - Influenza like illness [Unknown]
  - Weight decreased [Unknown]
  - Cholecystostomy [Unknown]
  - Chest discomfort [Unknown]
  - Malaise [Unknown]
  - Cholecystitis acute [Unknown]
  - Dizziness [Unknown]

NARRATIVE: CASE EVENT DATE: 20150715
